FAERS Safety Report 24777313 (Version 1)
Quarter: 2024Q4

REPORT INFORMATION
  Report Type: Spontaneous
  Country: US (occurrence: US)
  Receive Date: 20241226
  Receipt Date: 20241226
  Transmission Date: 20250115
  Serious: Yes (Other)
  Sender: MYLAN
  Company Number: US-MYLANLABS-2024M1113619

PATIENT
  Age: 79 Year
  Sex: Male

DRUGS (5)
  1. LEVOTHYROXINE [Interacting]
     Active Substance: LEVOTHYROXINE
     Indication: Hypothyroidism
     Dosage: 88 MICROGRAM, QD
     Route: 065
     Dates: start: 2016
  2. RELUGOLIX [Interacting]
     Active Substance: RELUGOLIX
     Indication: Prostate cancer
     Dosage: UNK
     Route: 065
     Dates: start: 202207
  3. ATORVASTATIN [Concomitant]
     Active Substance: ATORVASTATIN
     Indication: Product used for unknown indication
     Dosage: UNK UNK, AT NIGHT
     Route: 065
  4. TAMSULOSIN [Concomitant]
     Active Substance: TAMSULOSIN
     Indication: Product used for unknown indication
     Dosage: UNK UNK; AT NIGHT
     Route: 065
  5. VITAMIN D [Concomitant]
     Active Substance: VITAMIN D NOS
     Indication: Product used for unknown indication
     Dosage: UNK UNK; AT NIGHT
     Route: 065

REACTIONS (2)
  - Blood thyroid stimulating hormone increased [Recovered/Resolved]
  - Drug interaction [Recovered/Resolved]

NARRATIVE: CASE EVENT DATE: 20230224
